FAERS Safety Report 6819228-6 (Version None)
Quarter: 2010Q3

REPORT INFORMATION
  Report Type: 
  Country: None (occurrence: None)
  Receive Date: 20100707
  Receipt Date: 20100629
  Transmission Date: 20110219
  Serious: Yes (Hospitalization)
  Sender: FDA-Public Use
  Company Number: KR-BAYER-201030175GPV

PATIENT
  Age: 67 Year
  Sex: Male
  Weight: 77 kg

DRUGS (16)
  1. SORAFENIB [Suspect]
     Indication: HEPATIC NEOPLASM MALIGNANT
     Dosage: TOTAL DAILY DOSE: 400 MG  UNIT DOSE: 200 MG
     Route: 048
     Dates: start: 20100614, end: 20100620
  2. SORAFENIB [Suspect]
     Dosage: TOTAL DAILY DOSE: 800 MG  UNIT DOSE: 200 MG
     Route: 048
     Dates: start: 20100621, end: 20100623
  3. CILOSTAZOL [Concomitant]
     Route: 048
     Dates: start: 20100604
  4. NIFEDIPINE [Concomitant]
     Route: 048
     Dates: start: 20100604
  5. BETAXOLOL [Concomitant]
     Route: 048
     Dates: start: 20100604, end: 20100624
  6. URSODESOXYCHOLIC ACID [Concomitant]
     Route: 048
     Dates: start: 20100604, end: 20100624
  7. SILYMARIN [Concomitant]
     Route: 048
     Dates: start: 20100604, end: 20100624
  8. MAGMIL [Concomitant]
     Route: 048
     Dates: start: 20100604, end: 20100624
  9. REBAMIPIDE [Concomitant]
     Route: 048
     Dates: start: 20100621, end: 20100624
  10. DUPHALAC SYS [Concomitant]
     Route: 048
     Dates: start: 20100616
  11. FUROSEMIDE [Concomitant]
     Route: 048
     Dates: start: 20100621, end: 20100623
  12. SUCRALFATE [Concomitant]
     Dosage: 1G/DAT
     Dates: start: 20100623, end: 20100623
  13. HUMULIN R [Concomitant]
     Route: 058
     Dates: start: 20100601, end: 20100603
  14. LANTUS [Concomitant]
     Route: 058
     Dates: start: 20100605, end: 20100607
  15. ALBUMIN (HUMAN) [Concomitant]
     Dosage: 20%
     Route: 042
     Dates: start: 20100609, end: 20100611
  16. FREAMIN [Concomitant]
     Dosage: 10%
     Route: 042

REACTIONS (1)
  - HEPATIC ENCEPHALOPATHY [None]
